FAERS Safety Report 12080820 (Version 1)
Quarter: 2016Q1

REPORT INFORMATION
  Report Type: Report from Study
  Country: US (occurrence: US)
  Receive Date: 20160216
  Receipt Date: 20160216
  Transmission Date: 20160526
  Serious: No
  Sender: FDA-Public Use
  Company Number: PHEH2016US003368

PATIENT
  Sex: Female
  Weight: 24.94 kg

DRUGS (1)
  1. TOBI PODHALER [Suspect]
     Active Substance: TOBRAMYCIN
     Indication: PROPHYLAXIS
     Dosage: 112 MG, BID
     Route: 055
     Dates: start: 20151214

REACTIONS (2)
  - Product use issue [Unknown]
  - Cough [Unknown]
